FAERS Safety Report 7074474-4 (Version None)
Quarter: 2010Q4

REPORT INFORMATION
  Report Type: 
  Country: None (occurrence: None)
  Receive Date: 20101029
  Receipt Date: 20101019
  Transmission Date: 20110411
  Serious: Yes (Hospitalization)
  Sender: FDA-Public Use
  Company Number: PR-JNJFOC-20100800633

PATIENT
  Sex: Female
  Weight: 63.96 kg

DRUGS (6)
  1. EXTRA STRENGTH TYLENOL [Suspect]
     Route: 065
  2. EXTRA STRENGTH TYLENOL [Suspect]
     Indication: HEADACHE
     Route: 065
  3. PERCOCET [Suspect]
     Indication: PRODUCT USED FOR UNKNOWN INDICATION
  4. BUTALBITAL/ACETAMINOPHEN [Suspect]
     Indication: PRODUCT USED FOR UNKNOWN INDICATION
  5. PREDNISONE [Concomitant]
  6. PRISTIQ [Concomitant]

REACTIONS (4)
  - ACUTE HEPATIC FAILURE [None]
  - DRUG ADMINISTRATION ERROR [None]
  - OVERDOSE [None]
  - PRODUCT QUALITY ISSUE [None]
